FAERS Safety Report 5342399-8 (Version None)
Quarter: 2007Q2

REPORT INFORMATION
  Report Type: 
  Country: None (occurrence: None)
  Receive Date: 20070601
  Receipt Date: 20070522
  Transmission Date: 20071010
  Serious: Yes (Disabling)
  Sender: FDA-Public Use
  Company Number: CA-ROCHE-488272

PATIENT
  Age: 79 Year
  Sex: Female
  Weight: 48 kg

DRUGS (13)
  1. DEMADEX [Suspect]
     Indication: HYPERTENSION
     Route: 048
     Dates: start: 19970612, end: 19980915
  2. DEMADEX [Suspect]
     Route: 048
     Dates: start: 20020522
  3. COZAAR [Concomitant]
     Route: 048
     Dates: start: 20010701
  4. IMDUR [Concomitant]
     Route: 048
  5. LOPRESSOR SR [Concomitant]
     Route: 048
  6. ASPIRIN [Concomitant]
     Route: 048
  7. SYNTHROID [Concomitant]
     Indication: HYPOTHYROIDISM
     Route: 048
  8. ALLOPURINOL [Concomitant]
     Indication: GOUT
     Dosage: REPORTED AS TAKEN DAILY.
     Route: 048
  9. PRAVACHOL [Concomitant]
     Route: 048
  10. PANTOPRAZOLE SODIUM [Concomitant]
     Route: 048
  11. MIACALCIN [Concomitant]
     Dosage: REPORTED AS NASAL SPRAY.
     Route: 050
  12. VITAMIN D [Concomitant]
     Route: 048
  13. VITAMIN B6 [Concomitant]

REACTIONS (1)
  - PRURITUS [None]
